FAERS Safety Report 4694241-6 (Version None)
Quarter: 2005Q2

REPORT INFORMATION
  Report Type: 
  Country: None (occurrence: None)
  Receive Date: 20050617
  Receipt Date: 20050617
  Transmission Date: 20051028
  Serious: Yes (Hospitalization)
  Sender: FDA-Public Use
  Company Number: None

PATIENT
  Age: 17 Year
  Sex: Male
  Weight: 66.6788 kg

DRUGS (5)
  1. LEXAPRO [Suspect]
     Indication: DEPRESSION
     Dosage: 20 MG PO Q AM
     Route: 048
  2. DOXICYCLINE [Concomitant]
  3. METOPROLOL [Concomitant]
  4. RISPERDAL [Concomitant]
  5. CLONIDINE [Concomitant]

REACTIONS (2)
  - DISINHIBITION [None]
  - SUICIDAL IDEATION [None]
